FAERS Safety Report 16427736 (Version 2)
Quarter: 2019Q3

REPORT INFORMATION
  Report Type: Spontaneous
  Country: US (occurrence: US)
  Receive Date: 20190613
  Receipt Date: 20190718
  Transmission Date: 20191004
  Serious: No
  Sender: FDA-Public Use
  Company Number: US-ELI_LILLY_AND_COMPANY-US201905015850

PATIENT
  Sex: Female

DRUGS (7)
  1. EMGALITY [Suspect]
     Active Substance: GALCANEZUMAB-GNLM
     Dosage: 1 DOSAGE FORM, UNKNOWN
     Route: 065
     Dates: end: 20190501
  2. NADOLOL. [Concomitant]
     Active Substance: NADOLOL
     Dosage: 80 MG, DAILY
     Route: 065
  3. EMGALITY [Suspect]
     Active Substance: GALCANEZUMAB-GNLM
     Indication: PRODUCT USED FOR UNKNOWN INDICATION
     Dosage: 2 DOSAGE FORM, UNKNOWN
     Route: 065
     Dates: start: 20190401
  4. LEVOTHYROXINE. [Concomitant]
     Active Substance: LEVOTHYROXINE
     Dosage: 0.088 MG, DAILY
     Route: 065
  5. OMEPRAZOLE. [Concomitant]
     Active Substance: OMEPRAZOLE
     Dosage: 20 MG, DAILY
     Route: 065
  6. B-COMPLEX + VITAMIN C [Concomitant]
     Dosage: UNK, DAILY
     Route: 065
  7. ALEVE [Concomitant]
     Active Substance: NAPROXEN SODIUM
     Dosage: UNK, PRN
     Route: 065

REACTIONS (8)
  - Decreased appetite [Recovered/Resolved]
  - Insomnia [Recovered/Resolved]
  - Ageusia [Recovered/Resolved]
  - Chills [Recovered/Resolved]
  - Weight decreased [Recovered/Resolved]
  - Alopecia [Recovered/Resolved]
  - Cognitive disorder [Recovered/Resolved]
  - Negative thoughts [Recovered/Resolved]
